FAERS Safety Report 18086715 (Version 1)
Quarter: 2020Q3

REPORT INFORMATION
  Report Type: Spontaneous
  Country: ES (occurrence: ES)
  Receive Date: 20200729
  Receipt Date: 20200729
  Transmission Date: 20201103
  Serious: Yes (Life-Threatening)
  Sender: FDA-Public Use
  Company Number: ES-SCILEX PHARMACEUTICALS INC.-2020SCX00029

PATIENT
  Age: 70 Year
  Sex: Male

DRUGS (5)
  1. LIDOCAINE. [Suspect]
     Active Substance: LIDOCAINE
     Indication: ANAESTHESIA
     Dosage: 40 MG
     Route: 042
  2. SUCCINYLCHOLINE CHLORIDE. [Concomitant]
     Active Substance: SUCCINYLCHOLINE CHLORIDE
     Indication: ANAESTHESIA
     Dosage: 100 MG
     Route: 065
  3. FENTANYL. [Concomitant]
     Active Substance: FENTANYL
     Indication: ANAESTHESIA
     Dosage: 0.15 MG
     Route: 065
  4. PROPOFOL. [Concomitant]
     Active Substance: PROPOFOL
     Indication: ANAESTHESIA
     Dosage: 130 MG
     Route: 065
  5. AMOXICILLIN IN COMBINATION WITH CLAVULANIC ACID [Concomitant]
     Dosage: 2 G
     Route: 042

REACTIONS (1)
  - Anaphylactic reaction [Recovered/Resolved]
